FAERS Safety Report 6060611-7 (Version None)
Quarter: 2009Q1

REPORT INFORMATION
  Report Type: 
  Country: None (occurrence: None)
  Receive Date: 20090202
  Receipt Date: 20090122
  Transmission Date: 20090719
  Serious: Yes (Death, Hospitalization)
  Sender: FDA-Public Use
  Company Number: DE-AMGEN-US329714

PATIENT
  Sex: Female
  Weight: 66 kg

DRUGS (6)
  1. ENBREL [Suspect]
     Indication: RHEUMATOID ARTHRITIS
     Route: 058
     Dates: end: 20080423
  2. ACETYLSALICYLIC ACID SRT [Concomitant]
     Route: 048
  3. RAMIPRIL [Concomitant]
     Route: 048
  4. HYDROCHLOROTHIAZIDE [Concomitant]
     Route: 048
  5. METOPROLOL SUCCINATE [Concomitant]
     Route: 048
  6. ESOMEPRAZOLE [Concomitant]
     Route: 048

REACTIONS (11)
  - BRONCHITIS [None]
  - BRONCHOPNEUMONIA [None]
  - BUNDLE BRANCH BLOCK RIGHT [None]
  - CANDIDIASIS [None]
  - CORONARY ARTERY STENOSIS [None]
  - DEATH [None]
  - GASTROENTERITIS NOROVIRUS [None]
  - MYCOBACTERIAL INFECTION [None]
  - PNEUMONIA [None]
  - STAPHYLOCOCCAL INFECTION [None]
  - VENTRICULAR EXTRASYSTOLES [None]
